FAERS Safety Report 12609461 (Version 1)
Quarter: 2016Q3

REPORT INFORMATION
  Report Type: Other
  Country: IT (occurrence: IT)
  Receive Date: 20160801
  Receipt Date: 20160801
  Transmission Date: 20161109
  Serious: Yes (Other)
  Sender: FDA-Public Use
  Company Number: IT-LUPIN PHARMACEUTICALS INC.-2015-03368

PATIENT
  Age: 44 Year
  Sex: Female
  Weight: 58 kg

DRUGS (4)
  1. ACICLOVIR [Concomitant]
     Active Substance: ACYCLOVIR
     Indication: ANTIVIRAL PROPHYLAXIS
     Route: 065
  2. LEVETIRACETAM. [Suspect]
     Active Substance: LEVETIRACETAM
     Indication: EPILEPSY
     Route: 042
     Dates: start: 20150816, end: 20150818
  3. LEVETIRACETAM. [Suspect]
     Active Substance: LEVETIRACETAM
     Dosage: REDUCED DOSE
     Route: 042
  4. FLUCONAZOLE. [Concomitant]
     Active Substance: FLUCONAZOLE
     Indication: ANTIFUNGAL PROPHYLAXIS
     Route: 065

REACTIONS (1)
  - Transaminases increased [Recovering/Resolving]

NARRATIVE: CASE EVENT DATE: 20150818
